FAERS Safety Report 19694316 (Version 1)
Quarter: 2021Q3

REPORT INFORMATION
  Report Type: Spontaneous
  Country: BH (occurrence: BH)
  Receive Date: 20210813
  Receipt Date: 20210813
  Transmission Date: 20211014
  Serious: Yes (Hospitalization, Other)
  Sender: FDA-Public Use
  Company Number: BH-MACLEODS PHARMACEUTICALS US LTD-MAC2021032233

PATIENT

DRUGS (1)
  1. METFORMIN [Suspect]
     Active Substance: METFORMIN HYDROCHLORIDE
     Indication: PRODUCT USED FOR UNKNOWN INDICATION
     Dosage: 50 GRAM
     Route: 065

REACTIONS (3)
  - Overdose [Recovered/Resolved]
  - Rhabdomyolysis [Recovered/Resolved]
  - Metabolic acidosis [Recovered/Resolved]
